FAERS Safety Report 5050589-7 (Version None)
Quarter: 2006Q3

REPORT INFORMATION
  Report Type: 
  Country: None (occurrence: None)
  Receive Date: 20060713
  Receipt Date: 20060706
  Transmission Date: 20061208
  Serious: Yes (Hospitalization)
  Sender: FDA-Public Use
  Company Number: JP-JPN-A200602521

PATIENT
  Age: 81 Year
  Sex: Female

DRUGS (3)
  1. ZOVIRAX [Suspect]
     Route: 042
  2. ONEALFA [Concomitant]
     Route: 048
  3. JUVELA [Concomitant]
     Route: 065

REACTIONS (1)
  - URINARY RETENTION [None]
